FAERS Safety Report 17188150 (Version 1)
Quarter: 2019Q4

REPORT INFORMATION
  Report Type: Spontaneous
  Country: US (occurrence: US)
  Receive Date: 20191221
  Receipt Date: 20191221
  Transmission Date: 20200122
  Serious: Yes (Other)
  Sender: FDA-Public Use
  Company Number: US-AMGEN-USASP2019210016

PATIENT
  Sex: Male

DRUGS (8)
  1. REPATHA [Suspect]
     Active Substance: EVOLOCUMAB
     Indication: HYPERLIPIDAEMIA
  2. LEVOTHYROXIN [Concomitant]
     Active Substance: LEVOTHYROXINE
     Dosage: 100 MICROGRAM
  3. CARVEDILOL. [Concomitant]
     Active Substance: CARVEDILOL
     Dosage: 12.5 MILLIGRAM
  4. ZETIA [Concomitant]
     Active Substance: EZETIMIBE
     Dosage: 10 MILLIGRAM
  5. REPATHA [Suspect]
     Active Substance: EVOLOCUMAB
     Indication: OSTEOARTHRITIS
     Dosage: 140 MILLIGRAM PER MILLILITRE, Q2WK
     Route: 058
  6. NITROSTAT [Concomitant]
     Active Substance: NITROGLYCERIN
     Dosage: UNK
  7. TESTOSTERONE. [Concomitant]
     Active Substance: TESTOSTERONE
     Dosage: 200 MILLIGRAM PER MILLILITRE
  8. LOSARTAN POTASSIUM. [Concomitant]
     Active Substance: LOSARTAN POTASSIUM
     Dosage: 50 MILLIGRAM

REACTIONS (1)
  - Surgery [Not Recovered/Not Resolved]
